FAERS Safety Report 21521822 (Version 2)
Quarter: 2023Q2

REPORT INFORMATION
  Report Type: Report from Study
  Country: CA (occurrence: CA)
  Receive Date: 20221028
  Receipt Date: 20230629
  Transmission Date: 20230722
  Serious: Yes (Other)
  Sender: FDA-Public Use
  Company Number: CA-NOVARTISPH-NVSC2022CA239659

PATIENT
  Age: 64 Year
  Sex: Male

DRUGS (1)
  1. ERELZI [Suspect]
     Active Substance: ETANERCEPT-SZZS
     Indication: Ankylosing spondylitis
     Dosage: 50 MG
     Route: 058
     Dates: start: 20220512

REACTIONS (4)
  - Coronary artery occlusion [Unknown]
  - Dyspnoea [Unknown]
  - Product dose omission issue [Unknown]
  - Drug ineffective [Unknown]
